FAERS Safety Report 6885031-4 (Version None)
Quarter: 2010Q3

REPORT INFORMATION
  Report Type: 
  Country: None (occurrence: None)
  Receive Date: 20100729
  Receipt Date: 20071031
  Transmission Date: 20110219
  Serious: Yes (Hospitalization, Other)
  Sender: FDA-Public Use
  Company Number: US-PFIZER INC-2007091891

PATIENT
  Sex: Male
  Weight: 108.4 kg

DRUGS (1)
  1. CELEBREX [Suspect]
     Indication: ARTHRITIS
     Dates: start: 20010101

REACTIONS (3)
  - MYOCARDIAL INFARCTION [None]
  - PAIN [None]
  - STAPHYLOCOCCAL INFECTION [None]
